FAERS Safety Report 14074971 (Version 1)
Quarter: 2017Q4

REPORT INFORMATION
  Report Type: Spontaneous
  Country: DK (occurrence: DK)
  Receive Date: 20171010
  Receipt Date: 20171010
  Transmission Date: 20180321
  Serious: Yes (Death)
  Sender: FDA-Public Use
  Company Number: DK-ELI_LILLY_AND_COMPANY-DK201710002703

PATIENT
  Sex: Male

DRUGS (3)
  1. SERENASE                           /00027401/ [Suspect]
     Active Substance: HALOPERIDOL
     Indication: DELIRIUM
     Dosage: UNK UNK, PRN
     Route: 065
     Dates: start: 201706, end: 201707
  2. ZYPREXA [Suspect]
     Active Substance: OLANZAPINE
     Indication: DELIRIUM
     Dosage: 2.5 MG, PRN
     Route: 048
     Dates: start: 20170725, end: 20170729
  3. TREVICTA [Concomitant]
     Active Substance: PALIPERIDONE PALMITATE
     Indication: SCHIZOPHRENIA
     Dosage: 350 MG, UNK
     Route: 058
     Dates: start: 20170524

REACTIONS (1)
  - Death [Fatal]
